FAERS Safety Report 10099914 (Version 2)
Quarter: 2014Q2

REPORT INFORMATION
  Report Type: Spontaneous
  Country: US (occurrence: US)
  Receive Date: 20140423
  Receipt Date: 20140423
  Transmission Date: 20141212
  Serious: No
  Sender: FDA-Public Use
  Company Number: US-GILEAD-2013-0072677

PATIENT
  Sex: Male
  Weight: 173.24 kg

DRUGS (12)
  1. LETAIRIS [Suspect]
     Indication: PULMONARY HYPERTENSION
     Dosage: 5 MG, QD
     Route: 048
     Dates: start: 20110404
  2. LETAIRIS [Suspect]
     Indication: PORTOPULMONARY HYPERTENSION
  3. LETAIRIS [Suspect]
     Indication: DRUG ABUSE
  4. LETAIRIS [Suspect]
     Indication: ALCOHOL ABUSE
  5. LETAIRIS [Suspect]
     Indication: OBESITY
  6. ZYPREXA [Concomitant]
  7. FLUOXETINE [Concomitant]
  8. OXYGEN [Concomitant]
  9. ASA [Concomitant]
  10. K-DUR [Concomitant]
  11. LASIX                              /00032601/ [Concomitant]
  12. LISINOPRIL [Concomitant]

REACTIONS (2)
  - Syncope [Unknown]
  - Skin abrasion [Unknown]
